FAERS Safety Report 16353589 (Version 2)
Quarter: 2019Q2

REPORT INFORMATION
  Report Type: Report from Study
  Country: US (occurrence: US)
  Receive Date: 20190524
  Receipt Date: 20190618
  Transmission Date: 20190711
  Serious: Yes (Other)
  Sender: FDA-Public Use
  Company Number: US-PFIZER INC-2019160374

PATIENT
  Age: 59 Year
  Sex: Female

DRUGS (15)
  1. CALCIUM CARBONATE. [Concomitant]
     Active Substance: CALCIUM CARBONATE
     Dosage: UNK
     Dates: start: 20170522
  2. VITAMIN D3 [Concomitant]
     Active Substance: CHOLECALCIFEROL
     Dosage: 5000 IU, DAILY
     Dates: start: 20130418
  3. METHYL PROTECT [Concomitant]
     Dosage: 2 DF, DAILY
     Route: 048
     Dates: start: 20170522
  4. ADVIL [IBUPROFEN] [Concomitant]
     Active Substance: IBUPROFEN
     Indication: PAIN
     Dosage: 400 MG, AS NEEDED
     Route: 048
     Dates: start: 20130111
  5. GINGER [ZINGIBER OFFICINALE RHIZOME] [Concomitant]
     Dosage: 1 DF, DAILY
     Route: 048
     Dates: start: 20170522
  6. ADVIL [IBUPROFEN] [Concomitant]
     Active Substance: IBUPROFEN
     Indication: PYREXIA
  7. VITAMIN A + D [COLECALCIFEROL;RETINOL] [Concomitant]
     Dosage: UNK, DAILY [VITAMIN A-25000 IU]-[VITAMIN D- 1000 IU]
     Dates: start: 20170522
  8. IBRANCE [Suspect]
     Active Substance: PALBOCICLIB
     Indication: BREAST CANCER FEMALE
     Dosage: 150 MG, CYCLIC (DAILY FOR 21 DAYS, THEN OFF FOR 7 DAYS WITH FOOD)
     Dates: start: 20190401
  9. COQ 10 [Concomitant]
     Active Substance: UBIDECARENONE
     Dosage: 100 MG, DAILY
     Route: 048
     Dates: start: 20130111
  10. EXEMESTANE. [Concomitant]
     Active Substance: EXEMESTANE
     Dosage: 25 MG, DAILY
     Route: 048
     Dates: start: 20190401
  11. CBD [Concomitant]
     Active Substance: CANNABIDIOL
     Dosage: 200 MG, DAILY
     Route: 048
     Dates: start: 20170522
  12. HEPARIN FLUSH [Concomitant]
     Active Substance: HEPARIN SODIUM
     Dosage: 5 ML, AS NEEDED
     Route: 042
     Dates: start: 20190318
  13. IBRANCE [Suspect]
     Active Substance: PALBOCICLIB
     Dosage: 125 MG, CYCLIC (DAILY FOR 21 DAYS ON, 7 DAYS OFF)
     Route: 048
     Dates: start: 20190404, end: 20190424
  14. IBRANCE [Suspect]
     Active Substance: PALBOCICLIB
     Dosage: 100 MG, DAILY
     Route: 048
  15. MULTIVITAMIN + MINERAL [Concomitant]
     Active Substance: MINERALS\VITAMINS
     Dosage: 2 DF, DAILY
     Route: 048

REACTIONS (7)
  - Neutropenia [Unknown]
  - Fatigue [Unknown]
  - Arthralgia [Recovered/Resolved]
  - Bone marrow failure [Unknown]
  - Back pain [Recovered/Resolved]
  - Leukopenia [Unknown]
  - Diarrhoea [Recovered/Resolved]

NARRATIVE: CASE EVENT DATE: 2019
